FAERS Safety Report 7621871-1 (Version None)
Quarter: 2011Q3

REPORT INFORMATION
  Report Type: 
  Country: None (occurrence: None)
  Receive Date: 20110720
  Receipt Date: 20110711
  Transmission Date: 20111222
  Serious: No
  Sender: FDA-Public Use
  Company Number: US-BIOGENIDEC-2011BI025748

PATIENT
  Age: 30 Year
  Sex: Female

DRUGS (1)
  1. TYSABRI [Suspect]
     Indication: MULTIPLE SCLEROSIS
     Route: 042
     Dates: start: 20070717

REACTIONS (7)
  - EYE INFECTION [None]
  - SWELLING [None]
  - URINARY TRACT INFECTION [None]
  - MALAISE [None]
  - PAIN [None]
  - INFLAMMATION [None]
  - PHARYNGITIS [None]
